FAERS Safety Report 8200470-7 (Version None)
Quarter: 2012Q1

REPORT INFORMATION
  Report Type: 
  Country: None (occurrence: None)
  Receive Date: 20120301
  Receipt Date: 20120221
  Transmission Date: 20120608
  Serious: Yes (Hospitalization)
  Sender: FDA-Public Use
  Company Number: 2012031342

PATIENT
  Age: 64 Year
  Sex: Female
  Weight: 80.7403 kg

DRUGS (17)
  1. ADVAIR DISKUS 100/50 [Concomitant]
  2. CALCIUM CARBONATE [Concomitant]
  3. LIDODERM [Concomitant]
  4. CELEBREX [Concomitant]
  5. WELLBUTRIN [Concomitant]
  6. ESTRADIOL [Concomitant]
  7. VITAMIN B12 (VITAMIN B12 NOS) [Concomitant]
  8. RHINOCORT [Concomitant]
  9. VERAMYST (FLUTICASONE) [Concomitant]
  10. LOVAZA [Concomitant]
  11. HIZENTRA [Suspect]
     Indication: IMMUNODEFICIENCY COMMON VARIABLE
     Dosage: (8 G 2X/WEEK, 4 GM (2 ML) ON TWO TO FIVE SITES OVER 1-1.5 HOURS SUBCUTANEOUS)
     Route: 058
     Dates: start: 20120213, end: 20120213
  12. ROBAXIN [Concomitant]
  13. XYZAL [Concomitant]
  14. NEURONTIN [Concomitant]
  15. PREVACID [Concomitant]
  16. MULTIVITAMIN (MULTIVITAMIN /00831701/) [Concomitant]
  17. MECLIZINE [Concomitant]

REACTIONS (1)
  - GASTROINTESTINAL DISORDER [None]
